FAERS Safety Report 6801141-1 (Version None)
Quarter: 2010Q2

REPORT INFORMATION
  Report Type: 
  Country: None (occurrence: None)
  Receive Date: 20100629
  Receipt Date: 20100618
  Transmission Date: 20101027
  Serious: Yes (Other)
  Sender: FDA-Public Use
  Company Number: GB-PFIZER INC-2010058938

PATIENT
  Age: 66 Year
  Sex: Male

DRUGS (2)
  1. CAVERJECT DUAL CHAMBER [Suspect]
     Dosage: 10 UG, WEEKLY
  2. PERINDOPRIL [Concomitant]
     Indication: BLOOD PRESSURE ABNORMAL
     Dosage: 2MG AND 4MG ONCE DAILY

REACTIONS (1)
  - MUSCLE SPASMS [None]
